FAERS Safety Report 5879751-8 (Version None)
Quarter: 2008Q3

REPORT INFORMATION
  Report Type: 
  Country: None (occurrence: None)
  Receive Date: 20080912
  Receipt Date: 20080910
  Transmission Date: 20090109
  Serious: Yes (Death)
  Sender: FDA-Public Use
  Company Number: JP-ASTRAZENECA-2008AP07068

PATIENT
  Age: 82 Year
  Sex: Male

DRUGS (3)
  1. OMEPRAZOLE [Suspect]
     Route: 048
     Dates: start: 20080430, end: 20080904
  2. BLOPRESS [Suspect]
     Route: 048
     Dates: start: 20080430, end: 20080904
  3. ARTIST [Suspect]
     Route: 048
     Dates: start: 20080507, end: 20080904

REACTIONS (2)
  - RENAL FAILURE ACUTE [None]
  - RHABDOMYOLYSIS [None]
